FAERS Safety Report 7711993-9 (Version None)
Quarter: 2011Q3

REPORT INFORMATION
  Report Type: 
  Country: None (occurrence: None)
  Receive Date: 20110823
  Receipt Date: 20110816
  Transmission Date: 20111222
  Serious: Yes (Other)
  Sender: FDA-Public Use
  Company Number: 2011SP038863

PATIENT
  Sex: Female

DRUGS (3)
  1. RIBAVIRIN [Suspect]
     Indication: HEPATITIS C
     Dates: start: 20110603, end: 20110715
  2. VICTRELIS [Suspect]
     Indication: HEPATITIS C
     Dates: start: 20110701, end: 20110715
  3. PEG-INTRON [Suspect]
     Indication: HEPATITIS C
     Dates: start: 20110603, end: 20110715

REACTIONS (3)
  - PSORIASIS [None]
  - ALOPECIA [None]
  - THYROID DISORDER [None]
